FAERS Safety Report 23482714 (Version 4)
Quarter: 2024Q1

REPORT INFORMATION
  Report Type: Report from Study
  Country: AU (occurrence: AU)
  Receive Date: 20240205
  Receipt Date: 20240321
  Transmission Date: 20240409
  Serious: Yes (Other)
  Sender: FDA-Public Use
  Company Number: AU-BIOVITRUM-2024-AU-001648

PATIENT
  Age: 76 Year

DRUGS (8)
  1. DOPTELET [Suspect]
     Active Substance: AVATROMBOPAG MALEATE
     Indication: Aplastic anaemia
     Dosage: DAILY
     Route: 048
     Dates: start: 20211215, end: 20220622
  2. LINAGLIPTIN [Concomitant]
     Active Substance: LINAGLIPTIN
     Indication: Type 2 diabetes mellitus
     Dosage: DAILY
  3. ALLOPURINOL [Concomitant]
     Active Substance: ALLOPURINOL
     Indication: Gout
     Dosage: DAILY
  4. AMLODIPINE [Concomitant]
     Active Substance: AMLODIPINE BESYLATE
     Indication: Hypertension
     Dosage: DAILY
  5. CYCLOSPORINE [Concomitant]
     Active Substance: CYCLOSPORINE
     Indication: Aplastic anaemia
     Dosage: DAILY
  6. FUROSEMIDE [Concomitant]
     Active Substance: FUROSEMIDE
     Indication: Hypertension
     Dosage: DAILY
  7. ACITRETIN [Concomitant]
     Active Substance: ACITRETIN
     Indication: Skin cosmetic procedure
     Dosage: DAILY
  8. ACITRETIN [Concomitant]
     Active Substance: ACITRETIN
     Indication: Skin neoplasm excision

REACTIONS (1)
  - Clonal evolution [Not Recovered/Not Resolved]

NARRATIVE: CASE EVENT DATE: 20231213
